FAERS Safety Report 9189272 (Version 1)
Quarter: 2013Q1

REPORT INFORMATION
  Report Type: Spontaneous
  Country: US (occurrence: None)
  Receive Date: 20130321
  Receipt Date: 20130321
  Transmission Date: 20140127
  Serious: No
  Sender: FDA-Public Use
  Company Number: None

PATIENT
  Age: 15 Year
  Sex: Female
  Weight: 85.5 kg

DRUGS (8)
  1. DAPSONE [Suspect]
     Indication: ANTIFUNGAL PROPHYLAXIS
     Dosage: 100MG DAILY PO
     Route: 048
     Dates: start: 20120928, end: 20121008
  2. FOOD SUPPLEMENT [Concomitant]
  3. LACTOSE-FREE ORAL LIQUID [Concomitant]
  4. CHOLECALCIFEROL (VITAMIN D3) [Concomitant]
  5. MERCAPTOPURINE [Concomitant]
  6. SALINE FLUSH INJ [Concomitant]
  7. DEXTROSE [Concomitant]
  8. SODIUM CHLORIDE [Concomitant]

REACTIONS (1)
  - Methaemoglobinaemia [None]
